FAERS Safety Report 8511374-4 (Version None)
Quarter: 2012Q3

REPORT INFORMATION
  Report Type: 
  Country: None (occurrence: None)
  Receive Date: 20120716
  Receipt Date: 20120711
  Transmission Date: 20120928
  Serious: Yes (Death)
  Sender: FDA-Public Use
  Company Number: US-ASTELLAS-2012US006149

PATIENT
  Sex: Male

DRUGS (1)
  1. PROGRAF [Suspect]
     Indication: TRANSPLANT
     Dosage: 0.5 MG EVERY MORNING, 1 MG EVERY EVENING
     Route: 048
     Dates: start: 20111007, end: 20120531

REACTIONS (1)
  - DEATH [None]
